FAERS Safety Report 11750254 (Version 2)
Quarter: 2015Q4

REPORT INFORMATION
  Report Type: Spontaneous
  Country: US (occurrence: US)
  Receive Date: 20151118
  Receipt Date: 20151217
  Transmission Date: 20160304
  Serious: Yes (Hospitalization)
  Sender: FDA-Public Use
  Company Number: US-UNITED THERAPEUTICS-UNT-2015-014405

PATIENT
  Sex: Female

DRUGS (2)
  1. REMODULIN [Suspect]
     Active Substance: TREPROSTINIL
     Indication: PULMONARY ARTERIAL HYPERTENSION
     Dosage: 0.1195 ?G/KG, CONTINUING
     Route: 041
     Dates: start: 20120723
  2. REMODULIN [Suspect]
     Active Substance: TREPROSTINIL
     Dosage: 0.1195 ?G/KG, Q48H
     Route: 041
     Dates: start: 20140724

REACTIONS (5)
  - Oxygen saturation decreased [Unknown]
  - Pulmonary hypertension [Unknown]
  - Hypokalaemia [Recovered/Resolved]
  - Dyspnoea [Not Recovered/Not Resolved]
  - Oedema peripheral [Not Recovered/Not Resolved]

NARRATIVE: CASE EVENT DATE: 2015
